FAERS Safety Report 9013504 (Version 2)
Quarter: 2013Q1

REPORT INFORMATION
  Report Type: Spontaneous
  Country: US (occurrence: US)
  Receive Date: 20130115
  Receipt Date: 20130118
  Transmission Date: 20140127
  Serious: Yes (Hospitalization)
  Sender: FDA-Public Use
  Company Number: US-009507513-1301USA003166

PATIENT
  Age: 70 Year
  Sex: Female

DRUGS (4)
  1. PEGINTRON [Suspect]
     Indication: HYPEREOSINOPHILIC SYNDROME
     Dosage: 80/0.5 MICROGRAM,ONCE WEEKLY
     Route: 058
     Dates: start: 201209
  2. COUMADIN [Concomitant]
  3. PREDNISONE [Concomitant]
     Indication: HYPEREOSINOPHILIC SYNDROME
  4. SULFAMETHOXAZOLE [Concomitant]

REACTIONS (5)
  - Cellulitis [Recovering/Resolving]
  - Septic shock [Unknown]
  - Injection site infection [Unknown]
  - Injection site erythema [Unknown]
  - Injection site swelling [Unknown]
